FAERS Safety Report 16755616 (Version 2)
Quarter: 2019Q3

REPORT INFORMATION
  Report Type: Report from Study
  Country: US (occurrence: US)
  Receive Date: 20190829
  Receipt Date: 20190909
  Transmission Date: 20191005
  Serious: Yes (Death)
  Sender: FDA-Public Use
  Company Number: US-ROCHE-2396747

PATIENT
  Sex: Female
  Weight: 63.56 kg

DRUGS (2)
  1. TECENTRIQ [Suspect]
     Active Substance: ATEZOLIZUMAB
     Route: 042
     Dates: start: 20190606, end: 20190709
  2. TECENTRIQ [Suspect]
     Active Substance: ATEZOLIZUMAB
     Indication: NEUROENDOCRINE CARCINOMA
     Dosage: INFUSE 1200MG INTRAVENOUSLY EVERY 21 DAY(S) * 6 CYCLES W/VP + CARBO
     Route: 042
     Dates: start: 20190604

REACTIONS (2)
  - Non-small cell lung cancer [Fatal]
  - Respiratory disorder [Fatal]
